FAERS Safety Report 8335387-0 (Version None)
Quarter: 2012Q2

REPORT INFORMATION
  Report Type: 
  Country: None (occurrence: None)
  Receive Date: 20120503
  Receipt Date: 20120424
  Transmission Date: 20120825
  Serious: Yes (Hospitalization)
  Sender: FDA-Public Use
  Company Number: JP-MERCK-1203USA03102

PATIENT
  Age: 82 Year
  Sex: Female
  Weight: 40 kg

DRUGS (11)
  1. COZAAR [Concomitant]
     Indication: HYPERTENSION
     Route: 048
     Dates: start: 20110420
  2. PREDNISOLONE [Suspect]
     Indication: NEPHROTIC SYNDROME
     Route: 048
     Dates: start: 20110129
  3. FOSAMAX [Suspect]
     Indication: OSTEOPOROSIS
     Route: 048
     Dates: end: 20120101
  4. WARFARIN POTASSIUM [Concomitant]
     Indication: THROMBOSIS PROPHYLAXIS
     Route: 048
     Dates: start: 20110208
  5. GLUFAST [Concomitant]
     Indication: HYPERGLYCAEMIA
     Route: 048
     Dates: start: 20110301
  6. LANSOPRAZOLE [Concomitant]
     Indication: PROPHYLAXIS AGAINST GASTROINTESTINAL ULCER
     Route: 048
     Dates: start: 20100101
  7. DEPAS [Concomitant]
     Indication: INSOMNIA
     Route: 048
     Dates: start: 20100101
  8. LENDORMIN [Concomitant]
     Indication: INSOMNIA
     Route: 048
     Dates: start: 20100101
  9. CRESTOR [Concomitant]
     Indication: LIPIDS ABNORMAL
     Route: 048
     Dates: start: 20110302
  10. COTRIM [Concomitant]
     Indication: INFECTION PROPHYLAXIS
     Route: 048
     Dates: start: 20110203
  11. PERSANTIN [Concomitant]
     Indication: THROMBOSIS PROPHYLAXIS
     Route: 048
     Dates: start: 20110208

REACTIONS (2)
  - PNEUMONIA CRYPTOCOCCAL [None]
  - OSTEONECROSIS OF JAW [None]
